FAERS Safety Report 11868897 (Version 4)
Quarter: 2016Q1

REPORT INFORMATION
  Report Type: Spontaneous
  Country: FI (occurrence: FI)
  Receive Date: 20151225
  Receipt Date: 20160215
  Transmission Date: 20160526
  Serious: Yes (Life-Threatening, Hospitalization, Disabling)
  Sender: FDA-Public Use
  Company Number: FI-ROCHE-1684521

PATIENT
  Age: 45 Year
  Sex: Male

DRUGS (16)
  1. FEXOFENADINE [Concomitant]
     Active Substance: FEXOFENADINE\FEXOFENADINE HYDROCHLORIDE
  2. LEVEMIR [Concomitant]
     Active Substance: INSULIN DETEMIR
  3. IMODIUM [Concomitant]
     Active Substance: LOPERAMIDE HYDROCHLORIDE
  4. VESIX [Concomitant]
  5. PREDNISOLON [Concomitant]
     Active Substance: PREDNISOLONE
  6. ENALAPRIL [Concomitant]
     Active Substance: ENALAPRIL
  7. PANADOL (FINLAND) [Concomitant]
  8. LIPANTHYL [Concomitant]
     Active Substance: FENOFIBRATE
  9. NOVORAPID [Concomitant]
     Active Substance: INSULIN ASPART
  10. DIFORMIN RETARD [Concomitant]
     Active Substance: METFORMIN HYDROCHLORIDE
  11. MAREVAN [Concomitant]
     Active Substance: WARFARIN SODIUM
  12. LERCANIDIPINE HYDROCHLORIDE [Concomitant]
     Active Substance: LERCANIDIPINE HYDROCHLORIDE
  13. SIMVASTATIN. [Concomitant]
     Active Substance: SIMVASTATIN
  14. GABRION [Concomitant]
  15. SOMAC [Concomitant]
     Active Substance: PANTOPRAZOLE SODIUM
  16. XOLAIR [Suspect]
     Active Substance: OMALIZUMAB
     Indication: CHRONIC SPONTANEOUS URTICARIA
     Dosage: (150MG + 150 MG)
     Route: 065
     Dates: start: 20151125, end: 2015

REACTIONS (5)
  - Cellulitis [Recovered/Resolved]
  - Wound [Recovering/Resolving]
  - C-reactive protein increased [Recovered/Resolved]
  - Wound infection [Recovered/Resolved]
  - Erysipelas [Recovered/Resolved]

NARRATIVE: CASE EVENT DATE: 201512
